FAERS Safety Report 13285766 (Version 1)
Quarter: 2017Q1

REPORT INFORMATION
  Report Type: Spontaneous
  Country: FR (occurrence: FR)
  Receive Date: 20170302
  Receipt Date: 20170302
  Transmission Date: 20170428
  Serious: Yes (Other)
  Sender: FDA-Public Use
  Company Number: FR-MAYNE PHARMA-2017MYN000305

PATIENT
  Age: 52 Year
  Sex: Female

DRUGS (7)
  1. FLUOROURACILE [Concomitant]
     Active Substance: FLUOROURACIL
     Indication: BREAST CANCER
  2. HERCEPTIN [Concomitant]
     Active Substance: TRASTUZUMAB
     Indication: BREAST CANCER
  3. TAMOXIFEN CITRATE. [Suspect]
     Active Substance: TAMOXIFEN CITRATE
     Indication: BREAST CANCER
     Dosage: 20 MG, QD
     Dates: start: 2016
  4. TAXOTERE [Interacting]
     Active Substance: DOCETAXEL
     Indication: BREAST CANCER
  5. FARMORUBICINE [Concomitant]
     Active Substance: EPIRUBICIN HYDROCHLORIDE
     Indication: BREAST CANCER
  6. ENDOXAN                            /00021101/ [Concomitant]
     Active Substance: CYCLOPHOSPHAMIDE
     Indication: BREAST CANCER
  7. RADIOTHERAPY [Concomitant]
     Active Substance: RADIATION THERAPY
     Indication: BREAST CANCER

REACTIONS (2)
  - Retinopathy [None]
  - Potentiating drug interaction [None]
